FAERS Safety Report 19906836 (Version 1)
Quarter: 2021Q4

REPORT INFORMATION
  Report Type: Spontaneous
  Country: SE (occurrence: SE)
  Receive Date: 20211001
  Receipt Date: 20211001
  Transmission Date: 20220303
  Serious: Yes (Congenital Anomaly, Other)
  Sender: FDA-Public Use
  Company Number: SE-SA-SAC20210525001291

PATIENT

DRUGS (3)
  1. LAMOTRIGINE [Suspect]
     Active Substance: LAMOTRIGINE
     Indication: Product used for unknown indication
     Dosage: 1ST AND 2ND TRIMESTER
  2. VALPROIC ACID [Suspect]
     Active Substance: VALPROIC ACID
     Indication: Product used for unknown indication
     Dosage: DURING SEC TRIMESTER
     Route: 064
  3. VALPROIC ACID [Suspect]
     Active Substance: VALPROIC ACID
     Dosage: 900 MG, QD
     Route: 064

REACTIONS (2)
  - Pulmonary artery stenosis congenital [Unknown]
  - Foetal exposure during pregnancy [Recovered/Resolved]
